FAERS Safety Report 8193798-0 (Version None)
Quarter: 2012Q1

REPORT INFORMATION
  Report Type: 
  Country: None (occurrence: None)
  Receive Date: 20120308
  Receipt Date: 20120229
  Transmission Date: 20120608
  Serious: Yes (Other)
  Sender: FDA-Public Use
  Company Number: PHHY2012US017555

PATIENT
  Age: 7 Year
  Sex: Male

DRUGS (8)
  1. ANTI-THYMOCYTE GLOBULIN RABBIT NOS [Concomitant]
  2. MYCOPHENOLATE MOFETIL [Concomitant]
     Indication: GRAFT VERSUS HOST DISEASE
  3. CLOFARABINE [Concomitant]
     Dosage: 40 MG/M2, QD
     Route: 042
  4. BUSULFAN [Interacting]
     Dosage: 0.5 MG/KG, UNK
     Route: 042
  5. THIOTEPA [Concomitant]
     Dosage: 5 MG/KG, UNK
     Route: 042
  6. LORAZEPAM [Concomitant]
     Indication: CONVULSION
  7. METRONIDAZOLE [Suspect]
     Indication: CLOSTRIDIAL INFECTION
     Dosage: 250 MG, TID
     Route: 048
  8. TACROLIMUS [Concomitant]
     Indication: GRAFT VERSUS HOST DISEASE

REACTIONS (4)
  - ALANINE AMINOTRANSFERASE INCREASED [None]
  - ACUTE MYELOID LEUKAEMIA RECURRENT [None]
  - DRUG CLEARANCE DECREASED [None]
  - DRUG INTERACTION [None]
